FAERS Safety Report 12722333 (Version 1)
Quarter: 2016Q3

REPORT INFORMATION
  Report Type: Other
  Country: US (occurrence: US)
  Receive Date: 20160907
  Receipt Date: 20160907
  Transmission Date: 20161109
  Serious: Yes (Hospitalization, Other)
  Sender: FDA-Public Use
  Company Number: US-SHIRE-US201609936

PATIENT
  Age: 43 Year
  Sex: Female

DRUGS (16)
  1. NATPARA (PARATHYROID HORMONE) [Suspect]
     Active Substance: PARATHYROID HORMONE
     Indication: HYPOPARATHYROIDISM
     Dosage: UNK UNK, UNKNOWN
     Route: 058
     Dates: start: 20151010
  2. LUNESTA [Concomitant]
     Active Substance: ESZOPICLONE
     Indication: PRODUCT USED FOR UNKNOWN INDICATION
     Dosage: UNK, AS REQ^D
     Route: 065
  3. CALCITROL [Concomitant]
     Active Substance: CALCITRIOL
     Dosage: 1 ?G, 1X/DAY:QD
     Route: 065
     Dates: start: 20160802
  4. NATPARA (PARATHYROID HORMONE) [Suspect]
     Active Substance: PARATHYROID HORMONE
     Dosage: UNK UNK, ONE DOSE
     Route: 058
     Dates: start: 20160730, end: 20160730
  5. CALCIUM CITRATE [Concomitant]
     Active Substance: CALCIUM CITRATE
     Dosage: 3800 MG, UPTO 3800 ELEMENTAL CALCIUM IN FOUR DIVIDED DOSES
     Route: 065
  6. CALCITROL [Concomitant]
     Active Substance: CALCITRIOL
     Indication: HYPOCALCAEMIA
     Dosage: 0.5 ?G, ONE DOSE
     Route: 065
     Dates: start: 20160730, end: 20160730
  7. CALCITROL [Concomitant]
     Active Substance: CALCITRIOL
     Dosage: 0.25 ?G, 1X/DAY:QD
     Route: 058
     Dates: start: 20160731
  8. CALCITROL [Concomitant]
     Active Substance: CALCITRIOL
     Dosage: 1.25 ?G, 1X/DAY:QD 0.75 MCG IN MORNING AND 0.25 MCG AT BEDTIME
     Route: 065
  9. NATPARA (PARATHYROID HORMONE) [Suspect]
     Active Substance: PARATHYROID HORMONE
     Dosage: UNK UNK, ONE DOSE
     Route: 058
     Dates: start: 20160803
  10. SINGULAIR [Concomitant]
     Active Substance: MONTELUKAST SODIUM
     Indication: PRODUCT USED FOR UNKNOWN INDICATION
     Dosage: UNK, UNKNOWN
     Route: 065
  11. CALCIUM CITRATE [Concomitant]
     Active Substance: CALCIUM CITRATE
     Dosage: 3800 MG, UPTO 3800 ELEMENTAL CALCIUM IN FOUR DIVIDED DOSES
     Route: 065
  12. CALCITROL [Concomitant]
     Active Substance: CALCITRIOL
     Dosage: 1.25 ?G, 1X/DAY:QD 0.75 MCG IN MORNING AND 0.25 MCG AT BEDTIME
     Route: 065
  13. NATPARA (PARATHYROID HORMONE) [Suspect]
     Active Substance: PARATHYROID HORMONE
     Dosage: 100 ?G, 1X/DAY:QD
     Route: 058
     Dates: start: 20160510, end: 20160729
  14. LEVOTHYROXINE. [Concomitant]
     Active Substance: LEVOTHYROXINE
     Indication: PRODUCT USED FOR UNKNOWN INDICATION
     Dosage: 0.112 MG, 1X/DAY:QD
     Route: 065
  15. LIOTHYRONINE [Concomitant]
     Active Substance: LIOTHYRONINE
     Indication: PRODUCT USED FOR UNKNOWN INDICATION
     Dosage: 5 ?G, 1X/DAY:QD
     Route: 065
  16. CALCIUM CITRATE [Concomitant]
     Active Substance: CALCIUM CITRATE
     Indication: HYPOCALCAEMIA
     Dosage: 800 MG, 2X/DAY:BID
     Route: 065
     Dates: start: 20160730

REACTIONS (9)
  - Thrombophlebitis superficial [Unknown]
  - Asthma [Unknown]
  - Drug dose omission [Recovered/Resolved]
  - Hypocalcaemia [Unknown]
  - Dehydration [Recovered/Resolved]
  - Hypercalcaemia [Not Recovered/Not Resolved]
  - Staphylococcal infection [Unknown]
  - Incorrect product storage [Unknown]
  - Underdose [Recovered/Resolved]

NARRATIVE: CASE EVENT DATE: 20160730
